FAERS Safety Report 8138274-6 (Version None)
Quarter: 2012Q1

REPORT INFORMATION
  Report Type: 
  Country: None (occurrence: None)
  Receive Date: 20120215
  Receipt Date: 20111206
  Transmission Date: 20120608
  Serious: Yes (Death, Hospitalization, Other)
  Sender: FDA-Public Use
  Company Number: US-JNJFOC-20111012463

PATIENT
  Sex: Male
  Weight: 86.2 kg

DRUGS (23)
  1. ZOFRAN [Concomitant]
     Indication: NAUSEA
     Route: 042
  2. FLOMAX [Concomitant]
     Route: 048
  3. AMBIEN [Concomitant]
     Indication: SLEEP DISORDER
     Dosage: TREATMENT FOR GREATER THAN 5 YEARS
     Route: 048
  4. COUMADIN [Concomitant]
     Indication: ANTICOAGULANT THERAPY
     Route: 048
     Dates: start: 20090101
  5. NEURONTIN [Concomitant]
     Indication: NEUROPATHY PERIPHERAL
     Route: 048
     Dates: start: 20110815, end: 20111010
  6. SUNITINIB MALATE [Suspect]
     Indication: PROSTATE CANCER
     Route: 048
     Dates: start: 20111011, end: 20111025
  7. ATORVASTATIN [Concomitant]
     Route: 048
  8. LOVENOX [Concomitant]
     Route: 058
  9. IPRATROPIUM BROMIDE [Concomitant]
     Route: 065
  10. ZOSYN [Concomitant]
     Route: 065
  11. LIPITOR [Concomitant]
     Indication: HYPERCHOLESTEROLAEMIA
     Route: 048
     Dates: start: 20060101
  12. ABIRATERONE ACETATE [Suspect]
     Indication: PROSTATE CANCER
     Route: 048
     Dates: start: 20110723, end: 20111024
  13. PREDNISONE TAB [Suspect]
     Indication: PROSTATE CANCER
     Route: 048
     Dates: start: 20110723, end: 20111024
  14. ZOFRAN [Concomitant]
     Indication: VOMITING
     Route: 042
  15. ACETAMINOPHEN [Concomitant]
     Indication: PYREXIA
     Route: 048
  16. LEVALBUTEROL HCL [Concomitant]
     Route: 065
  17. CALCIUM W/VITAMIN D [Concomitant]
     Indication: MEDICAL DIET
     Route: 048
     Dates: start: 20090101
  18. ABIRATERONE ACETATE [Suspect]
     Route: 048
  19. OXYCODONE HCL [Concomitant]
     Indication: PAIN
     Route: 048
  20. FLOMAX [Concomitant]
     Indication: URINE FLOW DECREASED
     Route: 048
     Dates: start: 20090101
  21. LEVOFLOXACIN [Concomitant]
     Route: 042
  22. SENOKOT [Concomitant]
     Indication: CONSTIPATION
     Route: 048
  23. HYDROCODONE [Concomitant]
     Indication: PAIN
     Dosage: EVERY 4 HOURS AS REQUIRED; ONLY 1 AT NIGHT FOR THOSE DYSESTHESIAS STARTED 2009
     Route: 048

REACTIONS (2)
  - PNEUMONIA [None]
  - HYPOTENSION [None]
